FAERS Safety Report 4386948-5 (Version None)
Quarter: 2004Q2

REPORT INFORMATION
  Report Type: 
  Country: None (occurrence: None)
  Receive Date: 20040630
  Receipt Date: 20040618
  Transmission Date: 20050107
  Serious: Yes (Hospitalization)
  Sender: FDA-Public Use
  Company Number: FR-BRISTOL-MYERS SQUIBB COMPANY-12618674

PATIENT
  Age: 90 Year
  Sex: Female

DRUGS (4)
  1. COUMADIN [Suspect]
     Indication: ATRIAL FIBRILLATION
     Route: 048
     Dates: start: 19971015, end: 19980704
  2. COUMADIN [Suspect]
     Indication: ATRIAL FLUTTER
     Route: 048
     Dates: start: 19971015, end: 19980704
  3. ALDACTAZINE [Concomitant]
  4. NICARDIPINE HCL [Concomitant]

REACTIONS (3)
  - DRUG LEVEL INCREASED [None]
  - HYPERKALAEMIA [None]
  - INTERNATIONAL NORMALISED RATIO INCREASED [None]
